FAERS Safety Report 26130827 (Version 1)
Quarter: 2025Q4

REPORT INFORMATION
  Report Type: Spontaneous
  Country: US (occurrence: None)
  Receive Date: 20251208
  Receipt Date: 20251208
  Transmission Date: 20260118
  Serious: No
  Sender: FDA-CTU
  Company Number: None

PATIENT
  Age: 68 Year
  Sex: Male
  Weight: 116 kg

DRUGS (1)
  1. TIRZEPATIDE [Suspect]
     Active Substance: TIRZEPATIDE
     Dosage: FREQUENCY : WEEKLY;?
     Route: 058
     Dates: start: 20250818, end: 20251003

REACTIONS (3)
  - Suicidal ideation [None]
  - Mood altered [None]
  - Therapy cessation [None]

NARRATIVE: CASE EVENT DATE: 20251003
